FAERS Safety Report 7189989-8 (Version None)
Quarter: 2010Q4

REPORT INFORMATION
  Report Type: 
  Country: None (occurrence: None)
  Receive Date: 20101210
  Receipt Date: 20101202
  Transmission Date: 20110411
  Serious: Yes (Disabling)
  Sender: FDA-Public Use
  Company Number: 769687

PATIENT
  Sex: Female

DRUGS (1)
  1. BUPIVACAINE HCL [Suspect]
     Indication: LOCAL ANAESTHESIA
     Dosage: CONTINUOUS INFUSION
     Dates: start: 20040318

REACTIONS (6)
  - ANHEDONIA [None]
  - ARTHRITIS [None]
  - ARTHROPATHY [None]
  - EXOSTOSIS [None]
  - MEDICAL DEVICE COMPLICATION [None]
  - PAIN [None]
